FAERS Safety Report 22539152 (Version 1)
Quarter: 2023Q2

REPORT INFORMATION
  Report Type: Spontaneous
  Country: US (occurrence: US)
  Receive Date: 20230609
  Receipt Date: 20230609
  Transmission Date: 20230722
  Serious: No
  Sender: FDA-Public Use
  Company Number: US-APOTEX-2022AP010201

PATIENT
  Age: 39 Year
  Sex: Male

DRUGS (2)
  1. ATOMOXETINE [Suspect]
     Active Substance: ATOMOXETINE
     Indication: Drug therapy
     Dosage: 40 MILLIGRAM
     Route: 065
  2. ATOMOXETINE [Suspect]
     Active Substance: ATOMOXETINE
     Indication: Attention deficit hyperactivity disorder
     Dosage: 80 MILLIGRAM, QD
     Route: 065

REACTIONS (1)
  - Spontaneous ejaculation [Recovered/Resolved]
